FAERS Safety Report 10238348 (Version 1)
Quarter: 2014Q2

REPORT INFORMATION
  Report Type: Spontaneous
  Country: GB (occurrence: GB)
  Receive Date: 20140616
  Receipt Date: 20140616
  Transmission Date: 20141212
  Serious: Yes (Other)
  Sender: FDA-Public Use
  Company Number: GB-JNJFOC-20140608412

PATIENT
  Age: 92 Year
  Sex: Female
  Weight: 66.05 kg

DRUGS (9)
  1. TRAMADOL HYDROCHLORIDE [Suspect]
     Indication: ANALGESIC THERAPY
     Route: 048
     Dates: start: 20140517, end: 20140523
  2. TRAMADOL HYDROCHLORIDE [Suspect]
     Indication: ANALGESIC THERAPY
     Route: 048
     Dates: start: 20140516, end: 20140516
  3. PARACETAMOL [Concomitant]
     Indication: PRODUCT USED FOR UNKNOWN INDICATION
  4. SENNA [Concomitant]
     Indication: PRODUCT USED FOR UNKNOWN INDICATION
     Route: 065
  5. ALENDRONIC ACID [Concomitant]
     Indication: PRODUCT USED FOR UNKNOWN INDICATION
     Route: 065
  6. MACROGOL [Concomitant]
     Indication: PRODUCT USED FOR UNKNOWN INDICATION
     Route: 065
  7. FUROSEMIDE [Concomitant]
     Indication: PRODUCT USED FOR UNKNOWN INDICATION
     Route: 065
  8. ENOXAPARIN [Concomitant]
     Indication: PROPHYLAXIS
     Route: 065
     Dates: start: 20140410, end: 20140522
  9. RAMIPRIL [Concomitant]
     Indication: PRODUCT USED FOR UNKNOWN INDICATION
     Route: 065

REACTIONS (1)
  - Platelet count decreased [Not Recovered/Not Resolved]
